FAERS Safety Report 18708777 (Version 4)
Quarter: 2021Q3

REPORT INFORMATION
  Report Type: Report from Study
  Country: TW (occurrence: TW)
  Receive Date: 20210106
  Receipt Date: 20210714
  Transmission Date: 20211014
  Serious: Yes (Death, Other)
  Sender: FDA-Public Use
  Company Number: TW-INCYTE CORPORATION-2020IN012998

PATIENT

DRUGS (297)
  1. LACTAMAX [Concomitant]
     Indication: PRODUCT USED FOR UNKNOWN INDICATION
     Dosage: 500 MG, Q6H PRN
     Route: 065
  2. ALFACALCIDOL [Concomitant]
     Active Substance: ALFACALCIDOL
     Indication: CHRONIC KIDNEY DISEASE
     Dosage: 0.5 UG
     Route: 048
     Dates: start: 20170601, end: 20190304
  3. ALPRAZOLAM. [Concomitant]
     Active Substance: ALPRAZOLAM
     Indication: INSOMNIA
     Dosage: 0.5 MG
     Route: 048
     Dates: start: 20170410, end: 20200113
  4. AMIYU [Concomitant]
     Active Substance: AMINO ACIDS, SOURCE UNSPECIFIED
     Indication: CHRONIC KIDNEY DISEASE
     Dosage: 200 ML (/BOT)
     Route: 042
     Dates: start: 20191116, end: 20191120
  5. OLMETEC [Concomitant]
     Active Substance: OLMESARTAN MEDOXOMIL
     Dosage: 5/ 20 MG
     Route: 048
     Dates: start: 20191207, end: 20191213
  6. CHLORPHENIRAMINE [CHLORPHENAMINE] [Concomitant]
     Active Substance: CHLORPHENIRAMINE
     Dosage: 5 MG/ AMP
     Route: 042
     Dates: start: 20181002, end: 20181002
  7. CHLORPHENIRAMINE [CHLORPHENAMINE] [Concomitant]
     Active Substance: CHLORPHENIRAMINE
     Dosage: 5 MG/ AMP
     Route: 042
     Dates: start: 20190401, end: 20190401
  8. CHLORPHENIRAMINE [CHLORPHENAMINE] [Concomitant]
     Active Substance: CHLORPHENIRAMINE
     Dosage: 5 MG/ AMP
     Route: 042
     Dates: start: 20190806, end: 20190806
  9. CHLORPHENIRAMINE [CHLORPHENAMINE] [Concomitant]
     Active Substance: CHLORPHENIRAMINE
     Dosage: 5 MG/ AMP
     Route: 042
     Dates: start: 20200414, end: 20200414
  10. CHLORPHENIRAMINE [CHLORPHENAMINE] [Concomitant]
     Active Substance: CHLORPHENIRAMINE
     Dosage: 5 MG/ AMP
     Route: 042
     Dates: start: 20200814, end: 20200814
  11. CHLORPHENIRAMINE [CHLORPHENAMINE] [Concomitant]
     Active Substance: CHLORPHENIRAMINE
     Dosage: 5 MG/ AMP
     Route: 042
     Dates: start: 20200815, end: 20200815
  12. CHLORPHENIRAMINE [CHLORPHENAMINE] [Concomitant]
     Active Substance: CHLORPHENIRAMINE
     Dosage: 5 MG/ AMP
     Route: 042
     Dates: start: 20200816, end: 20200816
  13. CHLORPHENIRAMINE [CHLORPHENAMINE] [Concomitant]
     Active Substance: CHLORPHENIRAMINE
     Dosage: 5 MG/ AMP
     Route: 042
     Dates: start: 20181118, end: 20181118
  14. CHLORPHENIRAMINE [CHLORPHENAMINE] [Concomitant]
     Active Substance: CHLORPHENIRAMINE
     Dosage: 5 MG/ AMP
     Route: 042
     Dates: start: 20190419, end: 20190419
  15. CHLORPHENIRAMINE [CHLORPHENAMINE] [Concomitant]
     Active Substance: CHLORPHENIRAMINE
     Indication: PROPHYLAXIS
     Dosage: 5 MG/ AMP
     Route: 042
     Dates: start: 20200625, end: 20200625
  16. CHLORPHENIRAMINE [CHLORPHENAMINE] [Concomitant]
     Active Substance: CHLORPHENIRAMINE
     Dosage: 5 MG/ AMP
     Route: 042
     Dates: start: 20190726, end: 20190726
  17. CHLORPHENIRAMINE [CHLORPHENAMINE] [Concomitant]
     Active Substance: CHLORPHENIRAMINE
     Dosage: 5 MG/ AMP
     Route: 042
     Dates: start: 20200726, end: 20200726
  18. ESTAZOLAM. [Concomitant]
     Active Substance: ESTAZOLAM
     Indication: PRODUCT USED FOR UNKNOWN INDICATION
     Dosage: 1 MG
     Route: 048
     Dates: start: 20191014, end: 20191021
  19. FUROSEMIDE. [Concomitant]
     Active Substance: FUROSEMIDE
     Indication: PROPHYLAXIS
     Dosage: 20 MG/ AMP
     Route: 042
     Dates: start: 20181002, end: 20181002
  20. FUROSEMIDE. [Concomitant]
     Active Substance: FUROSEMIDE
     Dosage: 20 MG/ AMP
     Route: 042
     Dates: start: 20190917, end: 20190917
  21. FUROSEMIDE. [Concomitant]
     Active Substance: FUROSEMIDE
     Dosage: 20 MG/ AMP
     Route: 042
     Dates: start: 20190719, end: 20190719
  22. FUROSEMIDE. [Concomitant]
     Active Substance: FUROSEMIDE
     Dosage: 20 MG/ AMP
     Route: 042
     Dates: start: 20200325, end: 20200325
  23. FUROSEMIDE. [Concomitant]
     Active Substance: FUROSEMIDE
     Dosage: 20 MG/ AMP
     Route: 042
     Dates: start: 20200526, end: 20200526
  24. FUROSEMIDE. [Concomitant]
     Active Substance: FUROSEMIDE
     Dosage: 20 MG/ AMP
     Route: 042
     Dates: start: 20200331, end: 20200331
  25. FUROSEMIDE. [Concomitant]
     Active Substance: FUROSEMIDE
     Dosage: 20 MG/ AMP
     Route: 042
     Dates: start: 20190412, end: 20190412
  26. FUROSEMIDE. [Concomitant]
     Active Substance: FUROSEMIDE
     Dosage: 20 MG/ AMP
     Route: 042
     Dates: start: 20190419, end: 20190420
  27. HYDROCORTISONE. [Concomitant]
     Active Substance: HYDROCORTISONE
     Dosage: 100 MG/ VIAL
     Route: 042
     Dates: start: 20200219, end: 20200219
  28. IMIDAPRIL HCL [Concomitant]
     Active Substance: IMIDAPRIL HYDROCHLORIDE
     Indication: HYPERTENSIVE HEART DISEASE
     Dosage: 10 MG
     Route: 048
     Dates: start: 20190430, end: 20191014
  29. INSULIN ASPART [Concomitant]
     Active Substance: INSULIN ASPART
     Indication: DIABETES MELLITUS
     Dosage: 10 U
     Route: 058
     Dates: start: 20200812, end: 20200812
  30. INSULIN ASPART [Concomitant]
     Active Substance: INSULIN ASPART
     Dosage: 2 U
     Route: 058
     Dates: start: 20200806, end: 20200806
  31. INSULIN ASPART [Concomitant]
     Active Substance: INSULIN ASPART
     Dosage: 5 U
     Route: 058
     Dates: start: 20200825, end: 20200825
  32. INSULIN ASPART [Concomitant]
     Active Substance: INSULIN ASPART
     Dosage: 8 U
     Route: 058
     Dates: start: 20200806, end: 20200806
  33. INSULIN ASPART [Concomitant]
     Active Substance: INSULIN ASPART
     Dosage: 8 U
     Route: 058
     Dates: start: 20200826, end: 20200826
  34. INSULIN ASPART [Concomitant]
     Active Substance: INSULIN ASPART
     Dosage: 8 U
     Route: 058
     Dates: start: 20200828, end: 20200829
  35. INSULIN DEGLUDEC;LIRAGLUTIDE [Concomitant]
     Dosage: 16 U/ PEN
     Route: 058
     Dates: start: 20200807, end: 20200812
  36. INSULIN DEGLUDEC;LIRAGLUTIDE [Concomitant]
     Dosage: 6 U/ PEN
     Route: 058
     Dates: start: 20200803, end: 20200806
  37. LACTULOSE. [Concomitant]
     Active Substance: LACTULOSE
     Indication: CONSTIPATION
     Dosage: 13.32 G/ ML
     Route: 048
     Dates: start: 20190108, end: 20190114
  38. MINOXIDIL. [Concomitant]
     Active Substance: MINOXIDIL
     Dosage: 10 MG
     Route: 048
     Dates: start: 20191221, end: 20191223
  39. MINOXIDIL. [Concomitant]
     Active Substance: MINOXIDIL
     Dosage: 5 MG
     Route: 048
     Dates: start: 20200114, end: 20200504
  40. NICARDIPINE [Concomitant]
     Active Substance: NICARDIPINE
     Indication: HYPERTENSIVE HEART DISEASE
     Dosage: 50 MG/ AMP
     Route: 042
     Dates: start: 20191002, end: 20191002
  41. NICARDIPINE [Concomitant]
     Active Substance: NICARDIPINE
     Dosage: 50 MG/ AMP
     Route: 042
     Dates: start: 20200807, end: 20200818
  42. PAROXETINE HCL [Concomitant]
     Active Substance: PAROXETINE HYDROCHLORIDE
     Indication: PRODUCT USED FOR UNKNOWN INDICATION
     Dosage: 10 MG
     Route: 048
     Dates: start: 20191014, end: 20191021
  43. WARFARIN [Concomitant]
     Active Substance: WARFARIN
     Indication: HYPERTENSIVE HEART DISEASE
     Dosage: 2.5 MG
     Route: 048
     Dates: start: 20191208, end: 20191223
  44. JAKAVI [Suspect]
     Active Substance: RUXOLITINIB
     Dosage: 5 MG (DAILY)
     Route: 048
     Dates: start: 20191015, end: 20191223
  45. JAKAVI [Suspect]
     Active Substance: RUXOLITINIB
     Dosage: 20 MG, QD
     Route: 048
     Dates: start: 20191224, end: 20200705
  46. JAKAVI [Suspect]
     Active Substance: RUXOLITINIB
     Dosage: 5 MG (DAILY)
     Route: 048
     Dates: start: 20200821, end: 20200821
  47. OLMESARTAN [Concomitant]
     Active Substance: OLMESARTAN
     Indication: HYPERTENSION
     Dosage: UNK
     Route: 065
  48. NOVORAPID [Concomitant]
     Active Substance: INSULIN ASPART
     Indication: TYPE 2 DIABETES MELLITUS
     Dosage: UNK
     Route: 065
  49. AMLODIPINE [Concomitant]
     Active Substance: AMLODIPINE BESYLATE
     Dosage: 5 MG
     Route: 048
     Dates: start: 20190430, end: 20191014
  50. AMLODIPINE [Concomitant]
     Active Substance: AMLODIPINE BESYLATE
     Dosage: UNK (10/ 160/ 25 MG)
     Route: 048
     Dates: start: 20191213, end: 20200113
  51. AMLODIPINE [Concomitant]
     Active Substance: AMLODIPINE BESYLATE
     Dosage: 10/ 160/ 25 MG
     Route: 048
     Dates: start: 20200114, end: 20200504
  52. OLMETEC [Concomitant]
     Active Substance: OLMESARTAN MEDOXOMIL
     Indication: HYPERTENSIVE HEART DISEASE
     Dosage: 5/ 20 MG
     Route: 048
     Dates: start: 20191015, end: 20191213
  53. CALCIUM ACETATE. [Concomitant]
     Active Substance: CALCIUM ACETATE
     Indication: CHRONIC KIDNEY DISEASE
     Dosage: 667 MG
     Route: 048
     Dates: start: 20171005, end: 20190304
  54. CALCIUM ACETATE. [Concomitant]
     Active Substance: CALCIUM ACETATE
     Dosage: 1334 MG
     Route: 048
     Dates: start: 20191220, end: 20191221
  55. CHLORPHENIRAMINE [CHLORPHENAMINE] [Concomitant]
     Active Substance: CHLORPHENIRAMINE
     Dosage: 5 MG/ AMP
     Route: 042
     Dates: start: 20190610, end: 20190610
  56. CHLORPHENIRAMINE [CHLORPHENAMINE] [Concomitant]
     Active Substance: CHLORPHENIRAMINE
     Dosage: 5 MG/ AMP
     Route: 042
     Dates: start: 20200219, end: 20200219
  57. CHLORPHENIRAMINE [CHLORPHENAMINE] [Concomitant]
     Active Substance: CHLORPHENIRAMINE
     Dosage: 5 MG/ AMP
     Route: 042
     Dates: start: 20190820, end: 20190820
  58. CLOSTRIDIUM BUTYRICUM [Concomitant]
     Active Substance: CLOSTRIDIUM BUTYRICUM SPORES STRAIN M-55
     Dosage: 1 G/PER
     Route: 048
     Dates: start: 20200824, end: 20200903
  59. DARBEPOETIN ALFA [Concomitant]
     Active Substance: DARBEPOETIN ALFA
     Dosage: 20 UG/VIAL
     Route: 058
     Dates: start: 20200905, end: 20200905
  60. DEFERASIROX. [Concomitant]
     Active Substance: DEFERASIROX
     Indication: MYELOFIBROSIS
     Dosage: 250 MG
     Route: 048
     Dates: start: 20181030, end: 20181119
  61. DEFERASIROX. [Concomitant]
     Active Substance: DEFERASIROX
     Dosage: 625 MG
     Route: 048
     Dates: start: 20200505, end: 20200622
  62. DEFERASIROX. [Concomitant]
     Active Substance: DEFERASIROX
     Dosage: 750 MG
     Route: 048
     Dates: start: 20200623, end: 20200708
  63. DOXAZOSIN [Concomitant]
     Active Substance: DOXAZOSIN MESYLATE
     Dosage: 4 MG
     Route: 048
     Dates: start: 20190727, end: 20190806
  64. DOXAZOSIN [Concomitant]
     Active Substance: DOXAZOSIN MESYLATE
     Dosage: 4 MG
     Route: 048
     Dates: start: 20191001, end: 20191001
  65. FUROSEMIDE. [Concomitant]
     Active Substance: FUROSEMIDE
     Dosage: 20 MG/ AMP
     Route: 042
     Dates: start: 20200804, end: 20200804
  66. FUROSEMIDE. [Concomitant]
     Active Substance: FUROSEMIDE
     Dosage: 20 MG/ AMP
     Route: 042
     Dates: start: 20200414, end: 20200414
  67. FUROSEMIDE. [Concomitant]
     Active Substance: FUROSEMIDE
     Dosage: 20 MG/ AMP
     Route: 042
     Dates: start: 20191015, end: 20191015
  68. FUROSEMIDE. [Concomitant]
     Active Substance: FUROSEMIDE
     Dosage: 20 MG/ AMP
     Route: 042
     Dates: start: 20190413, end: 20190416
  69. INSULIN ASPART [Concomitant]
     Active Substance: INSULIN ASPART
     Dosage: 12 U
     Route: 058
     Dates: start: 20200819
  70. INSULIN ASPART [Concomitant]
     Active Substance: INSULIN ASPART
     Dosage: 12 U
     Route: 058
     Dates: start: 20200829, end: 20200905
  71. INSULIN DEGLUDEC;LIRAGLUTIDE [Concomitant]
     Dosage: 10 U/ PEN
     Route: 058
     Dates: start: 20200729, end: 20200729
  72. LINAGLIPTIN [Concomitant]
     Active Substance: LINAGLIPTIN
     Dosage: 5 MG
     Route: 048
     Dates: start: 20190419, end: 20190429
  73. MINOXIDIL. [Concomitant]
     Active Substance: MINOXIDIL
     Dosage: 10 MG
     Route: 048
     Dates: start: 20191213, end: 20191213
  74. NIFEDIPINE. [Concomitant]
     Active Substance: NIFEDIPINE
     Dosage: 5 MG
     Route: 048
     Dates: start: 20190627, end: 20190627
  75. SENNOSIDE A+B [Concomitant]
     Active Substance: SENNOSIDES A AND B
     Indication: CONSTIPATION
     Dosage: 12 MG
     Route: 048
     Dates: start: 20190125, end: 20191014
  76. TOLTERODINE L?TARTRATE [Concomitant]
     Active Substance: TOLTERODINE TARTRATE
     Indication: CHRONIC KIDNEY DISEASE
     Dosage: 2 MG
     Route: 048
     Dates: start: 20191119, end: 20191121
  77. WARFARIN [Concomitant]
     Active Substance: WARFARIN
     Dosage: 5 MG
     Route: 048
     Dates: start: 20190402, end: 20190402
  78. JAKAVI [Suspect]
     Active Substance: RUXOLITINIB
     Indication: MYELOFIBROSIS
     Dosage: UNK
     Route: 048
     Dates: start: 20170104
  79. CIPROXIN [CIPROFLOXACIN LACTATE] [Concomitant]
     Indication: PRODUCT USED FOR UNKNOWN INDICATION
     Dosage: 250 MG, QHS
     Route: 065
  80. DILTIAZEM. [Concomitant]
     Active Substance: DILTIAZEM
     Indication: HYPERTENSIVE HEART DISEASE
     Dosage: 90 MG
     Route: 048
     Dates: start: 20200821, end: 20200904
  81. AMLODIPINE [Concomitant]
     Active Substance: AMLODIPINE BESYLATE
     Dosage: 5 MG
     Route: 048
     Dates: start: 20200820, end: 20200820
  82. VALSARTAN. [Concomitant]
     Active Substance: VALSARTAN
     Dosage: 80 MG
     Route: 048
     Dates: start: 20190609, end: 20190610
  83. NEOMYCIN. [Concomitant]
     Active Substance: NEOMYCIN
     Indication: PRODUCT USED FOR UNKNOWN INDICATION
     Dosage: 2/ 3.5 MG/ TUB (OS)
     Route: 065
     Dates: start: 20200206, end: 20200212
  84. BISOPROLOL [Concomitant]
     Active Substance: BISOPROLOL
     Indication: HYPERTENSIVE HEART DISEASE
     Dosage: 2.5 MG
     Route: 048
     Dates: start: 20171228, end: 20190122
  85. BISOPROLOL [Concomitant]
     Active Substance: BISOPROLOL
     Dosage: 1.25 MG
     Route: 048
     Dates: start: 20200711, end: 20200813
  86. CALCIUM ACETATE. [Concomitant]
     Active Substance: CALCIUM ACETATE
     Dosage: 667 MG
     Route: 048
     Dates: start: 20191216, end: 20191220
  87. CARVEDILOL. [Concomitant]
     Active Substance: CARVEDILOL
     Dosage: 25 MG
     Route: 048
     Dates: start: 20191214, end: 20200113
  88. CHLORPHENIRAMINE [CHLORPHENAMINE] [Concomitant]
     Active Substance: CHLORPHENIRAMINE
     Dosage: 5 MG/ AMP
     Route: 042
     Dates: start: 20191001, end: 20191001
  89. CHLORPHENIRAMINE [CHLORPHENAMINE] [Concomitant]
     Active Substance: CHLORPHENIRAMINE
     Dosage: 5 MG/ AMP
     Route: 042
     Dates: start: 20200803, end: 20200803
  90. CHLORPHENIRAMINE [CHLORPHENAMINE] [Concomitant]
     Active Substance: CHLORPHENIRAMINE
     Dosage: 5 MG/ AMP
     Route: 042
     Dates: start: 20200906, end: 20200906
  91. CHLORPHENIRAMINE [CHLORPHENAMINE] [Concomitant]
     Active Substance: CHLORPHENIRAMINE
     Dosage: 5 MG/ AMP
     Route: 042
     Dates: start: 20191209, end: 20191209
  92. CHLORPHENIRAMINE [CHLORPHENAMINE] [Concomitant]
     Active Substance: CHLORPHENIRAMINE
     Dosage: 5 MG/ AMP
     Route: 042
     Dates: start: 20190711, end: 20190711
  93. CHLORPHENIRAMINE [CHLORPHENAMINE] [Concomitant]
     Active Substance: CHLORPHENIRAMINE
     Dosage: 5 MG/ AMP
     Route: 042
     Dates: start: 20190614, end: 20190614
  94. CHLORPHENIRAMINE [CHLORPHENAMINE] [Concomitant]
     Active Substance: CHLORPHENIRAMINE
     Dosage: 5 MG/ AMP
     Route: 042
     Dates: start: 20200715, end: 20200715
  95. CHLORPHENIRAMINE [CHLORPHENAMINE] [Concomitant]
     Active Substance: CHLORPHENIRAMINE
     Dosage: 5 MG/ AMP
     Route: 042
     Dates: start: 20191015, end: 20191015
  96. CHLORPHENIRAMINE [CHLORPHENAMINE] [Concomitant]
     Active Substance: CHLORPHENIRAMINE
     Dosage: 5 MG/ AMP
     Route: 042
     Dates: start: 20200722, end: 20200722
  97. CHLORPHENIRAMINE [CHLORPHENAMINE] [Concomitant]
     Active Substance: CHLORPHENIRAMINE
     Dosage: 5 MG/ AMP
     Route: 042
     Dates: start: 20200626, end: 20200726
  98. CHLORPHENIRAMINE [CHLORPHENAMINE] [Concomitant]
     Active Substance: CHLORPHENIRAMINE
     Dosage: 5 MG/ AMP
     Route: 042
     Dates: start: 20191029, end: 20191029
  99. CLOPIDOGREL [Concomitant]
     Active Substance: CLOPIDOGREL BISULFATE
     Indication: DEVICE RELATED INFECTION
     Dosage: 75 MG
     Route: 048
     Dates: start: 20200903, end: 20200905
  100. CLOSTRIDIUM BUTYRICUM [Concomitant]
     Active Substance: CLOSTRIDIUM BUTYRICUM SPORES STRAIN M-55
     Indication: CONSTIPATION
     Dosage: 2 G/PER
     Route: 048
     Dates: start: 20200806, end: 20200808
  101. DOXAZOSIN [Concomitant]
     Active Substance: DOXAZOSIN MESYLATE
     Dosage: 8 MG
     Route: 048
     Dates: start: 20190415, end: 20190429
  102. FUROSEMIDE. [Concomitant]
     Active Substance: FUROSEMIDE
     Indication: HYPERTENSIVE HEART DISEASE
     Dosage: 20 MG/ AMP
     Route: 042
     Dates: start: 20191001, end: 20191001
  103. FUROSEMIDE. [Concomitant]
     Active Substance: FUROSEMIDE
     Dosage: 20 MG/ AMP
     Route: 042
     Dates: start: 20200505, end: 20200505
  104. FUROSEMIDE. [Concomitant]
     Active Substance: FUROSEMIDE
     Dosage: 20 MG/ AMP
     Route: 042
     Dates: start: 20190406, end: 20190406
  105. FUROSEMIDE. [Concomitant]
     Active Substance: FUROSEMIDE
     Dosage: 60 MG/ AMP
     Route: 042
     Dates: start: 20190418, end: 20190418
  106. HYDRALAZINE [Concomitant]
     Active Substance: HYDRALAZINE HYDROCHLORIDE
     Dosage: 10 MG
     Route: 048
     Dates: start: 20190712, end: 20190712
  107. HYDRALAZINE [Concomitant]
     Active Substance: HYDRALAZINE HYDROCHLORIDE
     Dosage: 25 MG
     Route: 048
     Dates: start: 20200815, end: 20200830
  108. HYDROCORTISONE. [Concomitant]
     Active Substance: HYDROCORTISONE
     Dosage: 100 MG/ VIAL
     Route: 042
     Dates: start: 20191220, end: 20191220
  109. INSULIN ASPART [Concomitant]
     Active Substance: INSULIN ASPART
     Dosage: 4 U
     Route: 058
     Dates: start: 20200811, end: 20200811
  110. INSULIN ASPART [Concomitant]
     Active Substance: INSULIN ASPART
     Dosage: 8 U
     Route: 058
     Dates: start: 20200812, end: 20200812
  111. LABETALOL [Concomitant]
     Active Substance: LABETALOL\LABETALOL HYDROCHLORIDE
     Dosage: 25 MG/ VIAL
     Route: 042
     Dates: start: 20190818, end: 20190818
  112. LORAZEPAM. [Concomitant]
     Active Substance: LORAZEPAM
     Indication: INSOMNIA
     Dosage: 0.5 MG
     Route: 048
     Dates: start: 20190415, end: 20190429
  113. MINOXIDIL. [Concomitant]
     Active Substance: MINOXIDIL
     Indication: HYPERTENSIVE HEART DISEASE
     Dosage: 10 MG
     Route: 048
     Dates: start: 20200901, end: 20200905
  114. MINOXIDIL. [Concomitant]
     Active Substance: MINOXIDIL
     Dosage: 5 MG
     Route: 048
     Dates: start: 20200701, end: 20200701
  115. NIFEDIPINE. [Concomitant]
     Active Substance: NIFEDIPINE
     Dosage: 5 MG
     Route: 048
     Dates: start: 20190606, end: 20190606
  116. PENTOXIFYLLINE. [Concomitant]
     Active Substance: PENTOXIFYLLINE
     Dosage: 400 MG
     Route: 048
     Dates: start: 20190326, end: 20190429
  117. WARFARIN [Concomitant]
     Active Substance: WARFARIN
     Indication: DIABETES MELLITUS
     Dosage: 7.5 MG
     Route: 048
     Dates: start: 20170213, end: 20190329
  118. WARFARIN [Concomitant]
     Active Substance: WARFARIN
     Dosage: 7.5 MG
     Route: 048
     Dates: start: 20191001, end: 20191205
  119. WARFARIN [Concomitant]
     Active Substance: WARFARIN
     Dosage: 7.5 MG
     Route: 048
     Dates: start: 20190625, end: 20190930
  120. JAKAVI [Suspect]
     Active Substance: RUXOLITINIB
     Dosage: 15 MG (DAILY)
     Route: 048
     Dates: start: 20190712, end: 20190902
  121. LONITEN [Concomitant]
     Active Substance: MINOXIDIL
     Indication: HYPERTENSION
     Dosage: UNK
     Route: 065
  122. AMLODIPINE [Concomitant]
     Active Substance: AMLODIPINE BESYLATE
     Dosage: 10/ 160/ 25 MG
     Route: 048
     Dates: start: 20200814, end: 20200819
  123. OLMETEC [Concomitant]
     Active Substance: OLMESARTAN MEDOXOMIL
     Dosage: 10/ 40 MG
     Route: 048
     Dates: start: 20200505, end: 20200719
  124. CALCIUM ACETATE. [Concomitant]
     Active Substance: CALCIUM ACETATE
     Dosage: 667 MG
     Route: 048
     Dates: start: 20190820, end: 20191128
  125. CALCIUM ACETATE. [Concomitant]
     Active Substance: CALCIUM ACETATE
     Dosage: 667 MG
     Route: 048
     Dates: start: 20200822, end: 20200831
  126. CARVEDILOL. [Concomitant]
     Active Substance: CARVEDILOL
     Indication: HYPERTENSIVE HEART DISEASE
     Dosage: 12.5 MG
     Route: 048
     Dates: start: 20191210, end: 20191213
  127. CHLORPHENIRAMINE [CHLORPHENAMINE] [Concomitant]
     Active Substance: CHLORPHENIRAMINE
     Dosage: 5 MG/ AMP
     Route: 042
     Dates: start: 20200809, end: 20200809
  128. CHLORPHENIRAMINE [CHLORPHENAMINE] [Concomitant]
     Active Substance: CHLORPHENIRAMINE
     Dosage: 5 MG/ AMP
     Route: 042
     Dates: start: 20200211, end: 20200211
  129. CHLORPHENIRAMINE [CHLORPHENAMINE] [Concomitant]
     Active Substance: CHLORPHENIRAMINE
     Dosage: 5 MG/ AMP
     Route: 042
     Dates: start: 20200716, end: 20200716
  130. CHLORPHENIRAMINE [CHLORPHENAMINE] [Concomitant]
     Active Substance: CHLORPHENIRAMINE
     Dosage: 5 MG/ AMP
     Route: 042
     Dates: start: 20191220, end: 20191220
  131. CHLORPHENIRAMINE [CHLORPHENAMINE] [Concomitant]
     Active Substance: CHLORPHENIRAMINE
     Dosage: 5 MG/ AMP
     Route: 042
     Dates: start: 20200828, end: 20200828
  132. CHLORPHENIRAMINE [CHLORPHENAMINE] [Concomitant]
     Active Substance: CHLORPHENIRAMINE
     Dosage: 5 MG/ AMP
     Route: 042
     Dates: start: 20190330, end: 20190330
  133. FUROSEMIDE. [Concomitant]
     Active Substance: FUROSEMIDE
     Dosage: 20 MG/ AMP
     Route: 042
     Dates: start: 20200317, end: 20200317
  134. FUROSEMIDE. [Concomitant]
     Active Substance: FUROSEMIDE
     Dosage: 40 MG/ AMP
     Route: 042
     Dates: start: 20181118, end: 20181118
  135. HYDRALAZINE [Concomitant]
     Active Substance: HYDRALAZINE HYDROCHLORIDE
     Dosage: 10 MG
     Route: 048
     Dates: start: 20190715, end: 20190720
  136. HYDRALAZINE [Concomitant]
     Active Substance: HYDRALAZINE HYDROCHLORIDE
     Dosage: 25 MG
     Route: 048
     Dates: start: 20200717, end: 20200722
  137. HYDROCORTISONE. [Concomitant]
     Active Substance: HYDROCORTISONE
     Indication: ALLERGY PROPHYLAXIS
     Dosage: 100 MG/ VIAL
     Route: 042
     Dates: start: 20181118, end: 20181118
  138. IMIDAPRIL HCL [Concomitant]
     Active Substance: IMIDAPRIL HYDROCHLORIDE
     Dosage: 5 MG
     Route: 048
     Dates: start: 20190305, end: 20190403
  139. INSULIN ASPART [Concomitant]
     Active Substance: INSULIN ASPART
     Dosage: 18 U
     Route: 058
     Dates: start: 20200808, end: 20200808
  140. INSULIN ASPART [Concomitant]
     Active Substance: INSULIN ASPART
     Dosage: 4 U
     Route: 058
     Dates: start: 20200814, end: 20200825
  141. INSULIN DEGLUDEC;LIRAGLUTIDE [Concomitant]
     Dosage: 10 U/ PEN
     Route: 058
     Dates: start: 20200718, end: 20200718
  142. INSULIN DEGLUDEC;LIRAGLUTIDE [Concomitant]
     Dosage: 8 U/ PEN
     Route: 058
     Dates: start: 20200731, end: 20200802
  143. LABETALOL [Concomitant]
     Active Substance: LABETALOL\LABETALOL HYDROCHLORIDE
     Dosage: 12.5 MG/ VIAL
     Route: 042
     Dates: start: 20190420, end: 20200420
  144. METOCLOPRAMIDE. [Concomitant]
     Active Substance: METOCLOPRAMIDE
     Indication: HYPERTENSIVE HEART DISEASE
     Dosage: 5 MG
     Route: 048
     Dates: start: 20190423, end: 20190429
  145. NIFEDIPINE. [Concomitant]
     Active Substance: NIFEDIPINE
     Dosage: 50 MG
     Route: 048
     Dates: start: 20191001, end: 20191001
  146. SEVELAMER CARBONATE. [Concomitant]
     Active Substance: SEVELAMER CARBONATE
     Indication: CHRONIC KIDNEY DISEASE
     Dosage: 0.8 MG
     Route: 048
     Dates: start: 20191113, end: 20191119
  147. SPIRONOLACTONE. [Concomitant]
     Active Substance: SPIRONOLACTONE
     Indication: HYPERTENSIVE HEART DISEASE
     Dosage: 25 MG
     Route: 048
     Dates: start: 20190430, end: 20190624
  148. WARFARIN [Concomitant]
     Active Substance: WARFARIN
     Dosage: 7.5 MG
     Route: 048
     Dates: start: 20191224, end: 20200622
  149. SEVIKAR [Concomitant]
     Active Substance: AMLODIPINE BESYLATE\OLMESARTAN MEDOXOMIL
     Indication: HYPERTENSION
     Dosage: UNK
     Route: 065
  150. DILTIAZEM. [Concomitant]
     Active Substance: DILTIAZEM
     Indication: HYPERTENSION
     Dosage: 60 MG
     Route: 048
     Dates: start: 20200820, end: 20200820
  151. DILTIAZEM. [Concomitant]
     Active Substance: DILTIAZEM
     Dosage: 90 MG
     Route: 048
     Dates: start: 20200905, end: 20200905
  152. CORTISON [Concomitant]
     Active Substance: CORTISONE ACETATE
     Indication: ADRENAL INSUFFICIENCY
     Dosage: UNK
     Route: 065
  153. AMLODIPINE [Concomitant]
     Active Substance: AMLODIPINE BESYLATE
     Indication: HYPERTENSIVE HEART DISEASE
     Dosage: 5 MG
     Route: 048
     Dates: start: 20170406, end: 20190211
  154. AMLODIPINE [Concomitant]
     Active Substance: AMLODIPINE BESYLATE
     Dosage: 5 MG
     Route: 048
     Dates: start: 20190305, end: 20190411
  155. AMLODIPINE [Concomitant]
     Active Substance: AMLODIPINE BESYLATE
     Dosage: 5 MG
     Route: 048
     Dates: start: 20200807, end: 20200807
  156. OLMETEC [Concomitant]
     Active Substance: OLMESARTAN MEDOXOMIL
     Dosage: 10/ 40 MG
     Route: 048
     Dates: start: 20200724, end: 20200807
  157. VALSARTAN. [Concomitant]
     Active Substance: VALSARTAN
     Indication: HYPERTENSIVE HEART DISEASE
     Dosage: 5/ 160 MG
     Route: 048
     Dates: start: 20200719, end: 20200722
  158. BISOPROLOL [Concomitant]
     Active Substance: BISOPROLOL
     Dosage: 5 MG
     Route: 048
     Dates: start: 20190505, end: 20191116
  159. BISOPROLOL [Concomitant]
     Active Substance: BISOPROLOL
     Dosage: 2.5 MG
     Route: 048
     Dates: start: 20191116, end: 20191118
  160. BISOPROLOL [Concomitant]
     Active Substance: BISOPROLOL
     Dosage: 1.25 MG
     Route: 048
     Dates: start: 20200722, end: 20200722
  161. CHLORPHENIRAMINE [CHLORPHENAMINE] [Concomitant]
     Active Substance: CHLORPHENIRAMINE
     Indication: PROPHYLAXIS
     Dosage: 5 MG/ AMP
     Route: 042
     Dates: start: 20181030, end: 20181030
  162. CHLORPHENIRAMINE [CHLORPHENAMINE] [Concomitant]
     Active Substance: CHLORPHENIRAMINE
     Dosage: 5 MG/ AMP
     Route: 042
     Dates: start: 20191116, end: 20191116
  163. CHLORPHENIRAMINE [CHLORPHENAMINE] [Concomitant]
     Active Substance: CHLORPHENIRAMINE
     Dosage: 5 MG/ AMP
     Route: 042
     Dates: start: 20190718, end: 20190718
  164. CHLORPHENIRAMINE [CHLORPHENAMINE] [Concomitant]
     Active Substance: CHLORPHENIRAMINE
     Dosage: 5 MG/ AMP
     Route: 042
     Dates: start: 20190123, end: 20190123
  165. CHLORPHENIRAMINE [CHLORPHENAMINE] [Concomitant]
     Active Substance: CHLORPHENIRAMINE
     Dosage: 5 MG/ AMP
     Route: 042
     Dates: start: 20200831, end: 20200831
  166. DEFERASIROX. [Concomitant]
     Active Substance: DEFERASIROX
     Dosage: 375 MG
     Route: 048
     Dates: start: 20181120, end: 20190122
  167. DOXAZOSIN [Concomitant]
     Active Substance: DOXAZOSIN MESYLATE
     Indication: HYPERTENSIVE HEART DISEASE
     Dosage: 4 MG
     Route: 048
     Dates: start: 20190612, end: 20190614
  168. DOXAZOSIN [Concomitant]
     Active Substance: DOXAZOSIN MESYLATE
     Dosage: 4 MG
     Route: 048
     Dates: start: 20200707, end: 20200708
  169. FEBUXOSTAT. [Concomitant]
     Active Substance: FEBUXOSTAT
     Dosage: 40 MG
     Route: 048
     Dates: start: 20200505, end: 20200708
  170. FUROSEMIDE. [Concomitant]
     Active Substance: FUROSEMIDE
     Dosage: 40 MG/ AMP
     Route: 042
     Dates: start: 20191212, end: 20191212
  171. INSULIN ASPART [Concomitant]
     Active Substance: INSULIN ASPART
     Dosage: 4 U
     Route: 058
     Dates: start: 20200731, end: 20200731
  172. INSULIN ASPART [Concomitant]
     Active Substance: INSULIN ASPART
     Dosage: 5 U
     Route: 058
     Dates: start: 20200802, end: 20200805
  173. INSULIN ASPART [Concomitant]
     Active Substance: INSULIN ASPART
     Dosage: 8 U
     Route: 058
     Dates: start: 20200720, end: 20200721
  174. INSULIN DEGLUDEC;LIRAGLUTIDE [Concomitant]
     Dosage: 14 U/ PEN
     Route: 058
     Dates: start: 20200813, end: 20200814
  175. MEGESTROL [Concomitant]
     Active Substance: MEGESTROL
     Indication: PROPHYLAXIS
     Dosage: 400 MG/ BOT
     Route: 048
     Dates: start: 20191114, end: 20191128
  176. METOLAZONE. [Concomitant]
     Active Substance: METOLAZONE
     Dosage: 0.5 MG
     Route: 048
     Dates: start: 20190330, end: 20190330
  177. MINOXIDIL. [Concomitant]
     Active Substance: MINOXIDIL
     Dosage: 5 MG
     Route: 048
     Dates: start: 20200825, end: 20200830
  178. OLMESARTAN MEDOXOMIL;RAMIPRIL [Concomitant]
     Indication: HYPERTENSIVE HEART DISEASE
     Dosage: 20 MG
     Route: 048
     Dates: start: 20200820, end: 20200905
  179. PENTOXIFYLLINE. [Concomitant]
     Active Substance: PENTOXIFYLLINE
     Dosage: 400 MG
     Route: 048
     Dates: start: 20190430, end: 20191111
  180. TERAZOSIN [Concomitant]
     Active Substance: TERAZOSIN HYDROCHLORIDE
     Dosage: 4 MG
     Route: 048
     Dates: start: 20200814, end: 20200818
  181. WARFARIN [Concomitant]
     Active Substance: WARFARIN
     Dosage: 7.5 MG
     Route: 048
     Dates: start: 20190430, end: 20190513
  182. JAKAVI [Suspect]
     Active Substance: RUXOLITINIB
     Dosage: 10 MG, BID
     Route: 048
     Dates: start: 20181217
  183. JAKAVI [Suspect]
     Active Substance: RUXOLITINIB
     Dosage: 10 MG (DAILY)
     Route: 048
     Dates: start: 20190917, end: 20191014
  184. EXJADE [Concomitant]
     Active Substance: DEFERASIROX
     Indication: PRODUCT USED FOR UNKNOWN INDICATION
     Dosage: UNK
     Route: 065
  185. HYDROXYUREA. [Concomitant]
     Active Substance: HYDROXYUREA
     Indication: PRODUCT USED FOR UNKNOWN INDICATION
     Dosage: UNK
     Route: 065
     Dates: start: 20161121, end: 20190227
  186. AMILORIDE [Concomitant]
     Active Substance: AMILORIDE
     Indication: HYPERTENSIVE HEART DISEASE
     Dosage: 5/ 50 MG
     Route: 048
     Dates: start: 20190720, end: 20190720
  187. AMLODIPINE [Concomitant]
     Active Substance: AMLODIPINE BESYLATE
     Dosage: UNK (5/ 40/ 12.5 MG)
     Route: 048
     Dates: start: 20190614, end: 20190628
  188. CARVEDILOL. [Concomitant]
     Active Substance: CARVEDILOL
     Dosage: 12.5 MG
     Route: 048
     Dates: start: 20190726, end: 20190806
  189. CHLORPHENIRAMINE [CHLORPHENAMINE] [Concomitant]
     Active Substance: CHLORPHENIRAMINE
     Dosage: 5 MG/ AMP
     Route: 042
     Dates: start: 20200902, end: 20200902
  190. CHLORPHENIRAMINE [CHLORPHENAMINE] [Concomitant]
     Active Substance: CHLORPHENIRAMINE
     Dosage: 5 MG/ AMP
     Route: 042
     Dates: start: 20190406, end: 20190406
  191. CHLORPHENIRAMINE [CHLORPHENAMINE] [Concomitant]
     Active Substance: CHLORPHENIRAMINE
     Dosage: 5 MG/ AMP
     Route: 042
     Dates: start: 20200706, end: 20200706
  192. CHLORPHENIRAMINE [CHLORPHENAMINE] [Concomitant]
     Active Substance: CHLORPHENIRAMINE
     Dosage: 5 MG/ AMP
     Route: 042
     Dates: start: 20190412, end: 20190412
  193. CHLORPHENIRAMINE [CHLORPHENAMINE] [Concomitant]
     Active Substance: CHLORPHENIRAMINE
     Dosage: 5 MG/ AMP
     Route: 042
     Dates: start: 20190212, end: 20190212
  194. CHLORPHENIRAMINE [CHLORPHENAMINE] [Concomitant]
     Active Substance: CHLORPHENIRAMINE
     Dosage: 5 MG/ AMP
     Route: 042
     Dates: start: 20200713, end: 20200713
  195. CHLORPHENIRAMINE [CHLORPHENAMINE] [Concomitant]
     Active Substance: CHLORPHENIRAMINE
     Dosage: 5 MG/ AMP
     Route: 042
     Dates: start: 20200317, end: 20200317
  196. CHLORPHENIRAMINE [CHLORPHENAMINE] [Concomitant]
     Active Substance: CHLORPHENIRAMINE
     Dosage: 5 MG/ AMP
     Route: 042
     Dates: start: 20200718, end: 20200718
  197. CHLORPHENIRAMINE [CHLORPHENAMINE] [Concomitant]
     Active Substance: CHLORPHENIRAMINE
     Dosage: 5 MG/ AMP
     Route: 042
     Dates: start: 20200721, end: 20200721
  198. CHLORPHENIRAMINE [CHLORPHENAMINE] [Concomitant]
     Active Substance: CHLORPHENIRAMINE
     Dosage: 5 MG/ AMP
     Route: 042
     Dates: start: 20200325, end: 20200325
  199. CHLORPHENIRAMINE [CHLORPHENAMINE] [Concomitant]
     Active Substance: CHLORPHENIRAMINE
     Dosage: 5 MG/ AMP
     Route: 042
     Dates: start: 20200727, end: 20200727
  200. CHLORPHENIRAMINE [CHLORPHENAMINE] [Concomitant]
     Active Substance: CHLORPHENIRAMINE
     Dosage: 5 MG/ AMP
     Route: 042
     Dates: start: 20181030, end: 20181030
  201. CHLORPHENIRAMINE [CHLORPHENAMINE] [Concomitant]
     Active Substance: CHLORPHENIRAMINE
     Dosage: 5 MG/ AMP
     Route: 042
     Dates: start: 20200331, end: 20200331
  202. DAILYCARE ACTIBEST [Concomitant]
     Indication: PROPHYLAXIS
     Dosage: UNK
     Route: 048
     Dates: start: 20170731, end: 20190805
  203. DOXAZOSIN [Concomitant]
     Active Substance: DOXAZOSIN MESYLATE
     Dosage: 4 MG
     Route: 048
     Dates: start: 20190509, end: 20190510
  204. DOXAZOSIN [Concomitant]
     Active Substance: DOXAZOSIN MESYLATE
     Dosage: 4 MG
     Route: 048
     Dates: start: 20190723, end: 20190727
  205. FEBUXOSTAT. [Concomitant]
     Active Substance: FEBUXOSTAT
     Indication: HYPERURICAEMIA
     Dosage: 40 MG
     Route: 048
     Dates: start: 20130930, end: 20191223
  206. FUROSEMIDE. [Concomitant]
     Active Substance: FUROSEMIDE
     Dosage: 20 MG/ AMP
     Route: 042
     Dates: start: 20191112, end: 20191112
  207. FUROSEMIDE. [Concomitant]
     Active Substance: FUROSEMIDE
     Dosage: 20 MG/ AMP
     Route: 042
     Dates: start: 20200114, end: 20200114
  208. FUROSEMIDE. [Concomitant]
     Active Substance: FUROSEMIDE
     Dosage: 20 MG/ AMP
     Route: 042
     Dates: start: 20191029, end: 20191029
  209. FUROSEMIDE. [Concomitant]
     Active Substance: FUROSEMIDE
     Dosage: 40 MG/ AMP
     Route: 048
     Dates: start: 20190903, end: 20190916
  210. FUROSEMIDE. [Concomitant]
     Active Substance: FUROSEMIDE
     Dosage: 40 MG/ AMP
     Route: 042
     Dates: start: 20190420, end: 20190423
  211. FUROSEMIDE. [Concomitant]
     Active Substance: FUROSEMIDE
     Dosage: 40 MG/ AMP
     Route: 042
     Dates: start: 20190329, end: 20190329
  212. HYDRALAZINE [Concomitant]
     Active Substance: HYDRALAZINE HYDROCHLORIDE
     Dosage: 10 MG
     Route: 048
     Dates: start: 20200710, end: 20200717
  213. HYDRALAZINE [Concomitant]
     Active Substance: HYDRALAZINE HYDROCHLORIDE
     Dosage: 25 MG
     Route: 048
     Dates: start: 20190630, end: 20190702
  214. IMIDAPRIL HCL [Concomitant]
     Active Substance: IMIDAPRIL HYDROCHLORIDE
     Dosage: 5 MG
     Route: 048
     Dates: start: 20190419, end: 20190429
  215. INSULIN ASPART [Concomitant]
     Active Substance: INSULIN ASPART
     Dosage: 14 U
     Route: 058
     Dates: start: 20200809, end: 20200810
  216. INSULIN ASPART [Concomitant]
     Active Substance: INSULIN ASPART
     Dosage: 8 U
     Route: 058
     Dates: start: 20200808, end: 20200808
  217. INSULIN DEGLUDEC;LIRAGLUTIDE [Concomitant]
     Dosage: 6 U/ FLEX TOUCH PEN
     Route: 058
     Dates: start: 20200716, end: 20200717
  218. ISOSORBIDE?5?MONONITRATE [Concomitant]
     Active Substance: ISOSORBIDE MONONITRATE
     Indication: HYPERTENSIVE HEART DISEASE
     Dosage: 60 MG
     Route: 048
     Dates: start: 20190712, end: 20190806
  219. KETOSTERIL [Concomitant]
     Active Substance: AMINO ACIDS, SOURCE UNSPECIFIED
     Dosage: 2/ TAB
     Route: 048
     Dates: start: 20190416, end: 20191113
  220. LABETALOL [Concomitant]
     Active Substance: LABETALOL\LABETALOL HYDROCHLORIDE
     Indication: HYPERTENSIVE HEART DISEASE
     Dosage: 12.5 MG/ AMP
     Route: 042
     Dates: start: 20181118, end: 20181118
  221. LABETALOL [Concomitant]
     Active Substance: LABETALOL\LABETALOL HYDROCHLORIDE
     Dosage: 12.5 MG/ AMP
     Route: 042
     Dates: start: 20191001, end: 20191001
  222. NIFEDIPINE. [Concomitant]
     Active Substance: NIFEDIPINE
     Dosage: 5 MG
     Route: 048
     Dates: start: 20190422, end: 20190422
  223. PENTOXIFYLLINE. [Concomitant]
     Active Substance: PENTOXIFYLLINE
     Dosage: 800 MG
     Route: 048
     Dates: start: 20200114, end: 20200504
  224. TERAZOSIN [Concomitant]
     Active Substance: TERAZOSIN HYDROCHLORIDE
     Indication: HYPERTENSIVE HEART DISEASE
     Dosage: 2 MG
     Route: 048
     Dates: start: 20200813, end: 20200813
  225. THROUGH [Concomitant]
     Indication: CONSTIPATION
     Dosage: 12 MG
     Route: 048
     Dates: start: 20190709, end: 20190718
  226. JAKAVI [Suspect]
     Active Substance: RUXOLITINIB
     Dosage: 30 MG (DAILY)
     Route: 048
     Dates: start: 20181030, end: 20190711
  227. JAKAVI [Suspect]
     Active Substance: RUXOLITINIB
     Dosage: 5 MG, (DAILY)
     Route: 048
     Dates: start: 20190903, end: 20190916
  228. JAKAVI [Suspect]
     Active Substance: RUXOLITINIB
     Dosage: 10 MG, QD
     Route: 048
     Dates: start: 20200706, end: 20200708
  229. JAKAVI [Suspect]
     Active Substance: RUXOLITINIB
     Dosage: 5 MG, QD
     Route: 048
     Dates: start: 20200709, end: 20200714
  230. TRESIBA [Concomitant]
     Active Substance: INSULIN DEGLUDEC
     Indication: TYPE 2 DIABETES MELLITUS
     Dosage: UNK
     Route: 065
  231. AMLODIPINE [Concomitant]
     Active Substance: AMLODIPINE BESYLATE
     Dosage: 5 MG
     Route: 048
     Dates: start: 20200822, end: 20200822
  232. BISOPROLOL [Concomitant]
     Active Substance: BISOPROLOL
     Dosage: 5 MG
     Route: 048
     Dates: start: 20190123, end: 20191115
  233. BISOPROLOL [Concomitant]
     Active Substance: BISOPROLOL
     Dosage: 1.25 MG
     Route: 048
     Dates: start: 20191119, end: 20191128
  234. CHLORPHENIRAMINE [CHLORPHENAMINE] [Concomitant]
     Active Substance: CHLORPHENIRAMINE
     Dosage: 5 MG/ AMP
     Route: 042
     Dates: start: 20200303, end: 20200303
  235. CHLORPHENIRAMINE [CHLORPHENAMINE] [Concomitant]
     Active Substance: CHLORPHENIRAMINE
     Dosage: 5 MG/ AMP
     Route: 042
     Dates: start: 20200821, end: 20200821
  236. CHLORPHENIRAMINE [CHLORPHENAMINE] [Concomitant]
     Active Substance: CHLORPHENIRAMINE
     Dosage: 5 MG/ AMP
     Route: 042
     Dates: start: 20200623, end: 20200623
  237. CHLORPHENIRAMINE [CHLORPHENAMINE] [Concomitant]
     Active Substance: CHLORPHENIRAMINE
     Dosage: 5 MG/ AMP
     Route: 042
     Dates: start: 20190730, end: 20190730
  238. DARBEPOETIN ALFA [Concomitant]
     Active Substance: DARBEPOETIN ALFA
     Indication: CHRONIC KIDNEY DISEASE
     Dosage: 20 UG/VIAL
     Route: 058
     Dates: start: 20190212, end: 20190304
  239. DEFERASIROX. [Concomitant]
     Active Substance: DEFERASIROX
     Dosage: 375 MG
     Route: 048
     Dates: start: 20191217, end: 20191223
  240. DOXAZOSIN [Concomitant]
     Active Substance: DOXAZOSIN MESYLATE
     Dosage: 4 MG
     Route: 048
     Dates: start: 20190411, end: 20190415
  241. FUROSEMIDE. [Concomitant]
     Active Substance: FUROSEMIDE
     Dosage: 20 MG/ AMP
     Route: 042
     Dates: start: 20191210, end: 20191210
  242. FUROSEMIDE. [Concomitant]
     Active Substance: FUROSEMIDE
     Dosage: 20 MG/ AMP
     Route: 042
     Dates: start: 20200211, end: 20200211
  243. FUROSEMIDE. [Concomitant]
     Active Substance: FUROSEMIDE
     Dosage: 20 MG/ AMP
     Route: 042
     Dates: start: 20191116, end: 20191116
  244. FUROSEMIDE. [Concomitant]
     Active Substance: FUROSEMIDE
     Dosage: 20 MG/ AMP
     Route: 042
     Dates: start: 20200219, end: 20200219
  245. FUROSEMIDE. [Concomitant]
     Active Substance: FUROSEMIDE
     Dosage: 40 MG/ AMP
     Route: 048
     Dates: start: 20190417, end: 20190419
  246. HYDRALAZINE [Concomitant]
     Active Substance: HYDRALAZINE HYDROCHLORIDE
     Dosage: 25 MG
     Route: 048
     Dates: start: 20190724
  247. HYDROCORTISONE. [Concomitant]
     Active Substance: HYDROCORTISONE
     Dosage: 100 MG/ VIAL
     Route: 042
     Dates: start: 20190330, end: 20190330
  248. INSULIN ASPART [Concomitant]
     Active Substance: INSULIN ASPART
     Dosage: 12 U
     Route: 058
     Dates: start: 20200805, end: 20200805
  249. INSULIN ASPART [Concomitant]
     Active Substance: INSULIN ASPART
     Dosage: 12 U
     Route: 058
     Dates: start: 20200806, end: 20200806
  250. INSULIN ASPART [Concomitant]
     Active Substance: INSULIN ASPART
     Dosage: 4 U
     Route: 058
     Dates: start: 20200719, end: 20200719
  251. INSULIN ASPART [Concomitant]
     Active Substance: INSULIN ASPART
     Dosage: 6 U
     Route: 058
     Dates: start: 20200826, end: 20200827
  252. LABETALOL [Concomitant]
     Active Substance: LABETALOL\LABETALOL HYDROCHLORIDE
     Dosage: 25 MG/ AMP
     Route: 042
     Dates: start: 20191213, end: 20191213
  253. MINOXIDIL. [Concomitant]
     Active Substance: MINOXIDIL
     Dosage: 10 MG
     Route: 048
     Dates: start: 20200706, end: 20200706
  254. MINOXIDIL. [Concomitant]
     Active Substance: MINOXIDIL
     Dosage: 10 MG
     Route: 048
     Dates: start: 20200821, end: 20200824
  255. MIRTAZAPINE. [Concomitant]
     Active Substance: MIRTAZAPINE
     Indication: PRODUCT USED FOR UNKNOWN INDICATION
     Dosage: 15 MG
     Route: 048
     Dates: start: 20191007, end: 20191014
  256. NIFEDIPINE. [Concomitant]
     Active Substance: NIFEDIPINE
     Indication: HYPERTENSIVE HEART DISEASE
     Dosage: 5 MG
     Route: 048
     Dates: start: 20190701, end: 20190701
  257. NIFEDIPINE. [Concomitant]
     Active Substance: NIFEDIPINE
     Dosage: 5 MG
     Route: 048
     Dates: start: 20190610, end: 20190620
  258. PENTOXIFYLLINE. [Concomitant]
     Active Substance: PENTOXIFYLLINE
     Indication: PERIPHERAL ARTERIAL OCCLUSIVE DISEASE
     Dosage: 400 MG
     Route: 048
     Dates: start: 20200505, end: 20200629
  259. PIRENOXINE [Concomitant]
     Active Substance: PIRENOXINE
     Indication: PRODUCT USED FOR UNKNOWN INDICATION
     Dosage: 5 ML/ BOT
     Route: 050
     Dates: start: 20191008, end: 20191105
  260. ALFACALCIDOL [Concomitant]
     Active Substance: ALFACALCIDOL
     Dosage: 0.5 UG
     Route: 048
     Dates: start: 20200811, end: 20200901
  261. AMIYU [Concomitant]
     Active Substance: AMINO ACIDS, SOURCE UNSPECIFIED
     Dosage: 200 ML (/BOT)
     Route: 042
     Dates: start: 20200708, end: 20200711
  262. AMLODIPINE [Concomitant]
     Active Substance: AMLODIPINE BESYLATE
     Dosage: UNK (5/ 80/ 12.5 MG)
     Route: 048
     Dates: start: 20190212, end: 20190304
  263. AMLODIPINE [Concomitant]
     Active Substance: AMLODIPINE BESYLATE
     Dosage: UNK (10/ 160/ 25 MG)
     Route: 048
     Dates: start: 20190611, end: 20190613
  264. BISOPROLOL [Concomitant]
     Active Substance: BISOPROLOL
     Dosage: 5 MG
     Route: 048
     Dates: start: 20190331, end: 20190429
  265. CALCIUM POLYSTYRENE SULFONATE [Concomitant]
     Active Substance: CALCIUM POLYSTYRENE SULFONATE
     Indication: CHRONIC KIDNEY DISEASE
     Dosage: 5 G (/PAC)
     Route: 048
     Dates: start: 20190108, end: 20190114
  266. CHLORPHENIRAMINE [CHLORPHENAMINE] [Concomitant]
     Active Substance: CHLORPHENIRAMINE
     Dosage: 5 MG/ AMP
     Route: 042
     Dates: start: 20190903, end: 20190903
  267. CHLORPHENIRAMINE [CHLORPHENAMINE] [Concomitant]
     Active Substance: CHLORPHENIRAMINE
     Dosage: 5 MG/ AMP
     Route: 042
     Dates: start: 20200505, end: 20200505
  268. CHLORPHENIRAMINE [CHLORPHENAMINE] [Concomitant]
     Active Substance: CHLORPHENIRAMINE
     Dosage: 5 MG/ AMP
     Route: 042
     Dates: start: 20191212, end: 20191212
  269. CHLORPHENIRAMINE [CHLORPHENAMINE] [Concomitant]
     Active Substance: CHLORPHENIRAMINE
     Dosage: 5 MG/ AMP
     Route: 042
     Dates: start: 20200114, end: 20200114
  270. CHLORPHENIRAMINE [CHLORPHENAMINE] [Concomitant]
     Active Substance: CHLORPHENIRAMINE
     Dosage: 5 MG/ AMP
     Route: 042
     Dates: start: 20200714, end: 20200714
  271. CHLORPHENIRAMINE [CHLORPHENAMINE] [Concomitant]
     Active Substance: CHLORPHENIRAMINE
     Dosage: 5 MG/ AMP
     Route: 042
     Dates: start: 20190917, end: 20190917
  272. CHLORPHENIRAMINE [CHLORPHENAMINE] [Concomitant]
     Active Substance: CHLORPHENIRAMINE
     Dosage: 5 MG/ AMP
     Route: 042
     Dates: start: 20200526, end: 20200526
  273. CHLORPHENIRAMINE [CHLORPHENAMINE] [Concomitant]
     Active Substance: CHLORPHENIRAMINE
     Dosage: 5 MG/ AMP
     Route: 042
     Dates: start: 20200729, end: 20200729
  274. DEFERASIROX. [Concomitant]
     Active Substance: DEFERASIROX
     Dosage: 625 MG
     Route: 048
     Dates: start: 20191224, end: 20200224
  275. DEFERASIROX. [Concomitant]
     Active Substance: DEFERASIROX
     Dosage: 250 MG
     Route: 048
     Dates: start: 20200331, end: 20200504
  276. FLUOROMETHOLONE. [Concomitant]
     Active Substance: FLUOROMETHOLONE
     Indication: PRODUCT USED FOR UNKNOWN INDICATION
     Dosage: 0.2 MG/ ML, 5 ML/ BO
     Route: 050
     Dates: start: 20200206, end: 20200212
  277. FUROSEMIDE. [Concomitant]
     Active Substance: FUROSEMIDE
     Dosage: 20 MG/ AMP
     Route: 042
     Dates: start: 20200303, end: 20200303
  278. FUROSEMIDE. [Concomitant]
     Active Substance: FUROSEMIDE
     Dosage: 20 MG/ AMP
     Route: 042
     Dates: start: 20190711, end: 20190711
  279. FUROSEMIDE. [Concomitant]
     Active Substance: FUROSEMIDE
     Dosage: 20 MG/ AMP
     Route: 042
     Dates: start: 20190718, end: 20190718
  280. FUROSEMIDE. [Concomitant]
     Active Substance: FUROSEMIDE
     Dosage: 40 MG/ AMP
     Route: 048
     Dates: start: 20190423, end: 20190429
  281. FUROSEMIDE. [Concomitant]
     Active Substance: FUROSEMIDE
     Dosage: 40 MG/ AMP
     Route: 042
     Dates: start: 20190330, end: 20190331
  282. HYDRALAZINE [Concomitant]
     Active Substance: HYDRALAZINE HYDROCHLORIDE
     Indication: HYPERTENSIVE HEART DISEASE
     Dosage: 10 MG
     Route: 048
     Dates: start: 20200805
  283. HYDRALAZINE [Concomitant]
     Active Substance: HYDRALAZINE HYDROCHLORIDE
     Dosage: 10 MG
     Route: 048
     Dates: start: 20190612, end: 20190627
  284. HYDRALAZINE [Concomitant]
     Active Substance: HYDRALAZINE HYDROCHLORIDE
     Dosage: 10 MG
     Route: 048
     Dates: start: 20200723, end: 20200728
  285. IMIDAPRIL HCL [Concomitant]
     Active Substance: IMIDAPRIL HYDROCHLORIDE
     Dosage: 5 MG
     Route: 048
     Dates: start: 20190407, end: 20190408
  286. INSULIN ASPART [Concomitant]
     Active Substance: INSULIN ASPART
     Dosage: 6 U
     Route: 058
     Dates: start: 20200808, end: 20200808
  287. INSULIN ASPART [Concomitant]
     Active Substance: INSULIN ASPART
     Dosage: 6 U
     Route: 058
     Dates: start: 20200731, end: 20200802
  288. INSULIN DEGLUDEC;LIRAGLUTIDE [Concomitant]
     Indication: DIABETES MELLITUS
     Dosage: 10 U/ PEN
     Route: 058
     Dates: start: 20200815, end: 20200825
  289. INSULIN DEGLUDEC;LIRAGLUTIDE [Concomitant]
     Dosage: 12 U/ PEN
     Route: 058
     Dates: start: 20200826, end: 20200826
  290. INSULIN DEGLUDEC;LIRAGLUTIDE [Concomitant]
     Dosage: 15 U/ PEN
     Route: 058
     Dates: start: 20200827, end: 20200905
  291. KETOSTERIL [Concomitant]
     Active Substance: AMINO ACIDS, SOURCE UNSPECIFIED
     Indication: CHRONIC KIDNEY DISEASE
     Dosage: 2/ TAB
     Route: 048
     Dates: start: 20190212, end: 20190412
  292. LABETALOL [Concomitant]
     Active Substance: LABETALOL\LABETALOL HYDROCHLORIDE
     Dosage: 12.5 MG/ AMP
     Route: 042
     Dates: start: 20190719, end: 20190719
  293. LERCANIDIPINE [Concomitant]
     Active Substance: LERCANIDIPINE
     Indication: HYPERTENSIVE HEART DISEASE
     Dosage: 10 MG
     Route: 048
     Dates: start: 20190411, end: 20190429
  294. LINAGLIPTIN [Concomitant]
     Active Substance: LINAGLIPTIN
     Indication: DIABETES MELLITUS
     Dosage: 5 MG
     Route: 048
     Dates: start: 20190509, end: 20190510
  295. METOLAZONE. [Concomitant]
     Active Substance: METOLAZONE
     Indication: HYPERTENSIVE HEART DISEASE
     Dosage: 0.5 MG
     Route: 048
     Dates: start: 20190420, end: 20190429
  296. MINOXIDIL. [Concomitant]
     Active Substance: MINOXIDIL
     Dosage: 5 MG
     Route: 048
     Dates: start: 20200707, end: 20200707
  297. NIFEDIPINE. [Concomitant]
     Active Substance: NIFEDIPINE
     Dosage: 5 MG
     Route: 048
     Dates: start: 20190423, end: 20190429

REACTIONS (16)
  - Anaemia [Not Recovered/Not Resolved]
  - Bacteraemia [Fatal]
  - Device related bacteraemia [Fatal]
  - Respiratory distress [Fatal]
  - Drug hypersensitivity [Unknown]
  - Pulmonary oedema [Not Recovered/Not Resolved]
  - Rash [Unknown]
  - Haemoptysis [Unknown]
  - Neutropenia [Recovered/Resolved]
  - Abdominal pain [Unknown]
  - Dizziness [Unknown]
  - Altered state of consciousness [Fatal]
  - Pancytopenia [Recovered/Resolved]
  - Hypoaesthesia [Unknown]
  - Hyponatraemia [Unknown]
  - Metabolic encephalopathy [Unknown]

NARRATIVE: CASE EVENT DATE: 20200709
